FAERS Safety Report 13339237 (Version 2)
Quarter: 2017Q1

REPORT INFORMATION
  Report Type: Spontaneous
  Country: US (occurrence: US)
  Receive Date: 20170315
  Receipt Date: 20170331
  Transmission Date: 20170428
  Serious: Yes (Other)
  Sender: FDA-Public Use
  Company Number: US-ALLERGAN-1709281US

PATIENT
  Age: 66 Year
  Sex: Female

DRUGS (1)
  1. ARMOUR THYROID [Suspect]
     Active Substance: THYROID, PORCINE
     Indication: HYPOTHYROIDISM
     Dosage: 120 MG, QD
     Route: 048

REACTIONS (6)
  - Withdrawal syndrome [Unknown]
  - Tendon rupture [Unknown]
  - Tibia fracture [Unknown]
  - Gait disturbance [Unknown]
  - Joint injury [Unknown]
  - Femur fracture [Unknown]
